FAERS Safety Report 21351335 (Version 1)
Quarter: 2022Q3

REPORT INFORMATION
  Report Type: Spontaneous
  Country: US (occurrence: US)
  Receive Date: 20220919
  Receipt Date: 20220919
  Transmission Date: 20221026
  Serious: No
  Sender: FDA-Public Use
  Company Number: US-SA-SAC20220914001761

PATIENT
  Sex: Female
  Weight: 75.7 kg

DRUGS (22)
  1. DUPIXENT [Suspect]
     Active Substance: DUPILUMAB
     Indication: Asthma
     Dosage: 300MG QOW
     Route: 058
     Dates: start: 202110
  2. PANTOPRAZOLE SODIUM [Concomitant]
     Active Substance: PANTOPRAZOLE SODIUM
  3. VITAMIN C [Concomitant]
     Active Substance: ASCORBIC ACID
  4. FISH OIL [Concomitant]
     Active Substance: FISH OIL
     Dosage: 100-160 MG
  5. VITAMIN B COMPLEX [Concomitant]
     Active Substance: CYANOCOBALAMIN\DEXPANTHENOL\NIACINAMIDE\PYRIDOXINE HYDROCHLORIDE\RIBOFLAVIN 5^-PHOSPHATE SODIUM\THIA
  6. VITAMINS [Concomitant]
     Active Substance: VITAMINS
  7. TRIAMCINOLONE ACETONIDE [Concomitant]
     Active Substance: TRIAMCINOLONE ACETONIDE
  8. ADVAIR HFA [Concomitant]
     Active Substance: FLUTICASONE PROPIONATE\SALMETEROL XINAFOATE
     Dosage: 100-50 MCG BLST W/DEV
  9. PROAIR HFA [Concomitant]
     Active Substance: ALBUTEROL SULFATE
     Dosage: 90 MCG HFA AER AD
  10. ACYCLOVIR [Concomitant]
     Active Substance: ACYCLOVIR
  11. ZYRTEC [Concomitant]
     Active Substance: CETIRIZINE HYDROCHLORIDE
  12. MONTELUKAST SODIUM [Concomitant]
     Active Substance: MONTELUKAST SODIUM
  13. MELOXICAM [Concomitant]
     Active Substance: MELOXICAM
  14. ACETAMINOPHEN\HYDROCODONE [Concomitant]
     Active Substance: ACETAMINOPHEN\HYDROCODONE
  15. OLOPATADINE HYDROCHLORIDE [Concomitant]
     Active Substance: OLOPATADINE HYDROCHLORIDE
  16. AZELASTINE HYDROCHLORIDE [Concomitant]
     Active Substance: AZELASTINE HYDROCHLORIDE
  17. IPRATROPIUM BROMIDE [Concomitant]
     Active Substance: IPRATROPIUM BROMIDE
  18. METHOCARBAMOL [Concomitant]
     Active Substance: METHOCARBAMOL
  19. VENLAFAXINE HCL [Concomitant]
     Active Substance: VENLAFAXINE HYDROCHLORIDE
  20. TRAZODONE HCL [Concomitant]
     Active Substance: TRAZODONE HYDROCHLORIDE
  21. LISINOPRIL [Concomitant]
     Active Substance: LISINOPRIL
  22. NADOLOL [Concomitant]
     Active Substance: NADOLOL

REACTIONS (5)
  - Eczema [Unknown]
  - Skin haemorrhage [Unknown]
  - Skin fissures [Unknown]
  - Ocular hyperaemia [Unknown]
  - Oral herpes [Recovered/Resolved]
